FAERS Safety Report 7790642-8 (Version None)
Quarter: 2011Q3

REPORT INFORMATION
  Report Type: 
  Country: None (occurrence: None)
  Receive Date: 20110930
  Receipt Date: 20110606
  Transmission Date: 20111222
  Serious: No
  Sender: FDA-Public Use
  Company Number: US-BAYER-2011-049140

PATIENT
  Age: 71 Year
  Sex: Male

DRUGS (4)
  1. LEVITRA [Suspect]
     Indication: ERECTILE DYSFUNCTION
     Dosage: 10 MG, PRN
     Route: 048
     Dates: start: 20110501
  2. FLUOXETINE [Concomitant]
  3. LOPRESSOR [Concomitant]
     Indication: HYPERTENSION
  4. KLONOPIN [Concomitant]
     Dosage: UNK

REACTIONS (1)
  - ERECTILE DYSFUNCTION [None]
